FAERS Safety Report 25779153 (Version 2)
Quarter: 2025Q4

REPORT INFORMATION
  Report Type: Spontaneous
  Country: US (occurrence: US)
  Receive Date: 20250909
  Receipt Date: 20251211
  Transmission Date: 20260118
  Serious: Yes (Other)
  Sender: BAYER HEALTHCARE PHARMACEUTICALS INC.
  Company Number: US-BAYER-2025A118820

PATIENT
  Age: 64 Year
  Sex: Male

DRUGS (3)
  1. JIVI [Suspect]
     Active Substance: DAMOCTOCOG ALFA PEGOL
     Indication: Haemorrhage prophylaxis
     Dosage: STRENGTH-572/2107UNITS;5000 IU INTERNATIONAL UNIT(S),ONCE DAILY AS NEEDED
  2. JIVI [Suspect]
     Active Substance: DAMOCTOCOG ALFA PEGOL
     Indication: Haemorrhage prophylaxis
     Dosage: 1 DF
  3. JIVI [Suspect]
     Active Substance: DAMOCTOCOG ALFA PEGOL
     Indication: Haemorrhage prophylaxis
     Dosage: 1 DF

REACTIONS (2)
  - Skin cancer [None]
  - Tooth extraction [None]

NARRATIVE: CASE EVENT DATE: 20250404
